FAERS Safety Report 21834552 (Version 5)
Quarter: 2023Q4

REPORT INFORMATION
  Report Type: Report from Study
  Country: US (occurrence: US)
  Receive Date: 20230108
  Receipt Date: 20231023
  Transmission Date: 20240110
  Serious: Yes (Hospitalization, Other)
  Sender: FDA-Public Use
  Company Number: US-ABBVIE-4259821

PATIENT
  Age: 69 Year
  Sex: Male

DRUGS (1)
  1. HUMIRA [Suspect]
     Active Substance: ADALIMUMAB
     Indication: Rheumatoid arthritis
     Dosage: CITRATE FREE, FORM STRENGTH: 40 MG
     Route: 058
     Dates: start: 20200715

REACTIONS (7)
  - Arterial graft [Recovering/Resolving]
  - Leg amputation [Recovering/Resolving]
  - Hip fracture [Recovering/Resolving]
  - Transplant failure [Recovering/Resolving]
  - Fall [Unknown]
  - Surgery [Unknown]
  - Procedural pain [Unknown]

NARRATIVE: CASE EVENT DATE: 20230101
